FAERS Safety Report 5126073-9 (Version None)
Quarter: 2006Q4

REPORT INFORMATION
  Report Type: 
  Country: None (occurrence: None)
  Receive Date: 20061010
  Receipt Date: 20061010
  Transmission Date: 20070319
  Serious: Yes (Other)
  Sender: FDA-Public Use
  Company Number: None

PATIENT
  Age: 71 Year
  Sex: Male
  Weight: 81.6475 kg

DRUGS (1)
  1. FLOMAX [Suspect]
     Dosage: ONCE DAILY
     Dates: start: 20050701, end: 20060721

REACTIONS (2)
  - CATARACT OPERATION [None]
  - IRIS DISORDER [None]
